FAERS Safety Report 9260052 (Version 1)
Quarter: 2013Q2

REPORT INFORMATION
  Report Type: Spontaneous
  Country: US (occurrence: US)
  Receive Date: 20130429
  Receipt Date: 20130429
  Transmission Date: 20140414
  Serious: Yes (Other)
  Sender: FDA-Public Use
  Company Number: US-BAYER-2013-051421

PATIENT
  Age: 31 Year
  Sex: Female

DRUGS (9)
  1. YASMIN [Suspect]
  2. FOLIC ACID [Concomitant]
     Dosage: UNK
     Route: 048
     Dates: start: 20050708
  3. CLINDAMYCIN [Concomitant]
     Indication: STREPTOCOCCAL INFECTION
     Dosage: UNK
     Dates: start: 20050708
  4. PITOCIN [Concomitant]
     Dosage: UNK
     Dates: start: 20050708
  5. ADVIL [Concomitant]
     Dosage: UNK
     Route: 048
     Dates: start: 20050910
  6. BUTALBITAL, ACETAMINOPHEN + CAFFEINE [Concomitant]
     Dosage: UNK
     Route: 048
     Dates: start: 20050913
  7. HYDROCODONE W/APAP [Concomitant]
     Dosage: 5 MG/500 MG
     Route: 048
     Dates: start: 20050914
  8. METHOTREXATE [Concomitant]
     Indication: VAGINAL HAEMORRHAGE
  9. VICODIN [Concomitant]
     Indication: HEADACHE

REACTIONS (1)
  - Intracranial venous sinus thrombosis [None]
